FAERS Safety Report 9042518 (Version 1)
Quarter: 2013Q1

REPORT INFORMATION
  Report Type: Report from Study
  Country: US (occurrence: US)
  Receive Date: 20130129
  Receipt Date: 20130129
  Transmission Date: 20140127
  Serious: No
  Sender: FDA-Public Use
  Company Number: US-ABBOTT-12P-163-0907208-00

PATIENT
  Age: 29 Year
  Sex: Male

DRUGS (10)
  1. HUMIRA 40 MG/0.8 ML PEN [Suspect]
     Indication: CROHN^S DISEASE
     Dosage: FIRST DOSE LAST MONTH
     Dates: start: 201201, end: 201201
  2. HUMIRA 40 MG/0.8 ML PEN [Suspect]
     Dosage: TWO WEEKS LATER FROM FIRST DOSE
  3. APRISO [Concomitant]
     Indication: PRODUCT USED FOR UNKNOWN INDICATION
     Dosage: DAILY
     Route: 048
  4. OMEPRAZOLE [Concomitant]
     Indication: PRODUCT USED FOR UNKNOWN INDICATION
     Dosage: DAILY
     Route: 048
  5. PERCOCET [Concomitant]
     Indication: PAIN
     Dosage: 10/325 2 TABLETS EVERY 4 HOURS AS NEEDED
     Route: 048
  6. XANAX [Concomitant]
     Indication: ANXIETY
     Dosage: EVERY 12 HOURS AS NEEDED
     Route: 048
  7. TEMAZEPAM [Concomitant]
     Indication: INSOMNIA
     Dosage: EACH NIGHT
     Route: 048
  8. TRAZODONE [Concomitant]
     Indication: SLEEP DISORDER
     Dosage: EACH NIGHT
     Route: 048
  9. PHENERGAN [Concomitant]
     Indication: NAUSEA
     Dosage: AS NEEDED
     Route: 048
  10. AMITRIPTYLINE [Concomitant]
     Indication: DEPRESSION
     Dosage: DAILY
     Route: 048

REACTIONS (1)
  - Injection site pain [Recovered/Resolved]
